FAERS Safety Report 11395389 (Version 1)
Quarter: 2015Q3

REPORT INFORMATION
  Report Type: Spontaneous
  Country: US (occurrence: None)
  Receive Date: 20150817
  Receipt Date: 20150817
  Transmission Date: 20151125
  Serious: No
  Sender: FDA-Public Use
  Company Number: None

PATIENT
  Age: 66 Year
  Sex: Female
  Weight: 54.43 kg

DRUGS (7)
  1. TOLTERODINE [Concomitant]
     Active Substance: TOLTERODINE
  2. FLUTICASONE [Concomitant]
     Active Substance: FLUTICASONE\FLUTICASONE PROPIONATE
  3. TOLTERODINO TARTRATE [Suspect]
     Active Substance: TOLTERODINE TARTRATE
     Indication: STRESS URINARY INCONTINENCE
     Route: 048
  4. TOLTERODINO TARTRATE [Suspect]
     Active Substance: TOLTERODINE TARTRATE
     Indication: URGE INCONTINENCE
     Route: 048
  5. MAXALT [Concomitant]
     Active Substance: RIZATRIPTAN BENZOATE
  6. MAGNESIUM [Concomitant]
     Active Substance: MAGNESIUM
  7. RED YEAST RICE [Concomitant]
     Active Substance: DIETARY SUPPLEMENT

REACTIONS (2)
  - Screaming [None]
  - Nightmare [None]

NARRATIVE: CASE EVENT DATE: 20150815
